FAERS Safety Report 6007925-4 (Version None)
Quarter: 2008Q4

REPORT INFORMATION
  Report Type: 
  Country: None (occurrence: None)
  Receive Date: 20081217
  Receipt Date: 20080612
  Transmission Date: 20090506
  Serious: No
  Sender: FDA-Public Use
  Company Number: US-ASTRAZENECA-2008UW11795

PATIENT
  Age: 75 Year
  Sex: Female
  Weight: 63.5 kg

DRUGS (10)
  1. CRESTOR [Suspect]
     Dosage: 10 MG
     Route: 048
  2. NIACIN [Interacting]
  3. COUMADIN [Interacting]
     Indication: CARDIAC PACEMAKER INSERTION
     Dates: start: 20060101
  4. COUMADIN [Concomitant]
  5. ONE-A-DAY VITAMIN [Concomitant]
  6. SYNTHROID [Concomitant]
  7. AMARYL [Concomitant]
  8. LASIX [Concomitant]
  9. DIOVAN [Concomitant]
  10. AMIODARONE HCL [Concomitant]

REACTIONS (3)
  - CARDIAC PACEMAKER INSERTION [None]
  - CONTUSION [None]
  - DRUG INTERACTION [None]
